FAERS Safety Report 9904183 (Version 4)
Quarter: 2014Q1

REPORT INFORMATION
  Report Type: Spontaneous
  Country: BE (occurrence: BE)
  Receive Date: 20140218
  Receipt Date: 20140313
  Transmission Date: 20141002
  Serious: Yes (Other)
  Sender: FDA-Public Use
  Company Number: BE-BEH-2012033786

PATIENT
  Age: 4 Year
  Sex: Male

DRUGS (27)
  1. HIZENTRA [Suspect]
     Route: 058
     Dates: start: 20130918, end: 20130918
  2. HIZENTRA [Suspect]
     Route: 058
     Dates: start: 20130918, end: 20130918
  3. HIZENTRA [Suspect]
     Route: 058
     Dates: start: 20130921, end: 20130921
  4. HIZENTRA [Suspect]
     Route: 058
     Dates: start: 20130925, end: 20130925
  5. HIZENTRA [Suspect]
     Route: 058
     Dates: start: 20130925, end: 20130925
  6. HIZENTRA [Suspect]
     Route: 058
     Dates: start: 20131002, end: 20131002
  7. HIZENTRA [Suspect]
     Route: 058
     Dates: start: 20131009, end: 20131009
  8. HIZENTRA [Suspect]
     Route: 058
     Dates: start: 20131009, end: 20131009
  9. HIZENTRA [Suspect]
     Route: 058
     Dates: start: 20131016, end: 20131016
  10. HIZENTRA [Suspect]
     Route: 058
     Dates: start: 20131023, end: 20131023
  11. HIZENTRA [Suspect]
     Route: 058
     Dates: start: 20131023, end: 20131023
  12. HIZENTRA [Suspect]
     Route: 058
     Dates: start: 20131030, end: 20131030
  13. HIZENTRA [Suspect]
     Route: 058
     Dates: start: 20131106, end: 20131106
  14. HIZENTRA [Suspect]
     Route: 058
     Dates: start: 20131106, end: 20131106
  15. HIZENTRA [Suspect]
     Route: 058
     Dates: start: 20131113, end: 20131113
  16. HIZENTRA [Suspect]
     Route: 058
     Dates: start: 20131120, end: 20131120
  17. HIZENTRA [Suspect]
     Route: 058
     Dates: start: 20131120, end: 20131120
  18. HIZENTRA [Suspect]
     Route: 058
     Dates: start: 20131127, end: 20131127
  19. HIZENTRA [Suspect]
     Route: 058
     Dates: start: 20131204, end: 20131204
  20. HIZENTRA [Suspect]
     Route: 058
     Dates: start: 20131204, end: 20131204
  21. HIZENTRA [Suspect]
     Route: 058
     Dates: start: 20131211, end: 20131211
  22. HIZENTRA [Suspect]
     Route: 058
     Dates: start: 20131218, end: 20131218
  23. HIZENTRA [Suspect]
     Route: 058
     Dates: start: 20131218, end: 20131218
  24. HIZENTRA [Suspect]
     Route: 058
     Dates: start: 20131226, end: 20131226
  25. HIZENTRA [Suspect]
     Route: 058
     Dates: start: 20131231, end: 20131231
  26. HIZENTRA [Suspect]
     Route: 058
     Dates: start: 20131231, end: 20131231
  27. HIZENTRA [Suspect]
     Indication: HYPOGAMMAGLOBULINAEMIA
     Route: 058
     Dates: start: 20121004, end: 20121004

REACTIONS (6)
  - Respiratory tract infection [Recovered/Resolved]
  - Agitation [Recovered/Resolved]
  - Headache [Recovered/Resolved]
  - Injection site pruritus [Recovered/Resolved]
  - Respiratory tract infection [Recovered/Resolved]
  - Respiratory tract infection [Recovered/Resolved]
